FAERS Safety Report 15015787 (Version 1)
Quarter: 2018Q2

REPORT INFORMATION
  Report Type: Spontaneous
  Country: US (occurrence: US)
  Receive Date: 20180530
  Receipt Date: 20180530
  Transmission Date: 20180711
  Serious: Yes (Other)
  Sender: FDA-Public Use
  Company Number: None

PATIENT
  Age: 10 Year
  Sex: Male
  Weight: 28.8 kg

DRUGS (1)
  1. METHYLPHENIDATE HC 36MG TER [Suspect]
     Active Substance: METHYLPHENIDATE HYDROCHLORIDE
     Indication: ATTENTION DEFICIT/HYPERACTIVITY DISORDER
     Dosage: ?          QUANTITY:1 TABLET(S);?
     Route: 048
     Dates: start: 20180524

REACTIONS (4)
  - Product substitution issue [None]
  - Drug ineffective [None]
  - Disturbance in attention [None]
  - Abnormal behaviour [None]

NARRATIVE: CASE EVENT DATE: 20180529
